FAERS Safety Report 11869408 (Version 6)
Quarter: 2017Q1

REPORT INFORMATION
  Report Type: Report from Study
  Country: US (occurrence: US)
  Receive Date: 20151227
  Receipt Date: 20170329
  Transmission Date: 20170428
  Serious: No
  Sender: FDA-Public Use
  Company Number: PHHY2015US099102

PATIENT
  Age: 42 Year
  Sex: Female

DRUGS (1)
  1. GILENYA [Suspect]
     Active Substance: FINGOLIMOD HYDROCHLORIDE
     Indication: MULTIPLE SCLEROSIS
     Dosage: 0.5 MG, QD
     Route: 048

REACTIONS (19)
  - Lymphocyte count decreased [Unknown]
  - Lentigo [Unknown]
  - Haemangioma of skin [Unknown]
  - Cafe au lait spots [Unknown]
  - Disturbance in attention [Unknown]
  - Abdominal discomfort [Unknown]
  - Depression [Unknown]
  - Headache [Recovered/Resolved]
  - Diplopia [Recovered/Resolved]
  - Pain in extremity [Recovered/Resolved]
  - Hypoaesthesia [Recovered/Resolved]
  - Nausea [Unknown]
  - Burning sensation [Recovered/Resolved]
  - Asthenia [Recovered/Resolved]
  - Alanine aminotransferase increased [Unknown]
  - Constipation [Unknown]
  - Muscle spasms [Unknown]
  - Melanocytic naevus [Unknown]
  - Gait disturbance [Recovered/Resolved]

NARRATIVE: CASE EVENT DATE: 20150623
